FAERS Safety Report 7200947-7 (Version None)
Quarter: 2010Q4

REPORT INFORMATION
  Report Type: 
  Country: None (occurrence: None)
  Receive Date: 20101228
  Receipt Date: 20101223
  Transmission Date: 20110411
  Serious: Yes (Other)
  Sender: FDA-Public Use
  Company Number: US-AMGEN-QUU433113

PATIENT

DRUGS (8)
  1. NPLATE [Suspect]
     Indication: IDIOPATHIC THROMBOCYTOPENIC PURPURA
     Dosage: 807 A?G, UNK
     Dates: start: 20090122, end: 20090409
  2. NPLATE [Suspect]
     Dates: start: 20090122, end: 20090409
  3. PREDNISONE [Concomitant]
     Dosage: UNK UNK, UNK
     Dates: start: 20061003
  4. GLYBURIDE AND METFORMIN HYDROCHLORIDE [Concomitant]
     Dosage: UNK UNK, QD
  5. OXYCODONE HYDROCHLORIDE [Concomitant]
     Dosage: 10 MG, QD
  6. LANSOPRAZOLE [Concomitant]
     Dosage: 30 MG, QD
  7. ELTROMBOPAG [Concomitant]
     Dosage: 25 MG, BID
     Route: 048
     Dates: start: 20090112
  8. IMMUNE GLOBULIN NOS [Concomitant]

REACTIONS (2)
  - PLATELET COUNT DECREASED [None]
  - PLATELET COUNT INCREASED [None]
